FAERS Safety Report 21951621 (Version 2)
Quarter: 2023Q1

REPORT INFORMATION
  Report Type: Spontaneous
  Country: PT (occurrence: None)
  Receive Date: 20230203
  Receipt Date: 20230314
  Transmission Date: 20230418
  Serious: Yes (Other)
  Sender: FDA-Public Use
  Company Number: 2023A021921

PATIENT
  Age: 51 Year
  Sex: Female

DRUGS (2)
  1. GEFITINIB [Suspect]
     Active Substance: GEFITINIB
     Indication: Lung adenocarcinoma
     Route: 048
  2. OSIMERTINIB [Concomitant]
     Active Substance: OSIMERTINIB
     Indication: EGFR gene mutation
     Route: 048
     Dates: start: 201704

REACTIONS (3)
  - Acquired gene mutation [Unknown]
  - Malignant neoplasm progression [Unknown]
  - Drug resistance [Unknown]
